APPROVED DRUG PRODUCT: BUPIVACAINE HYDROCHLORIDE
Active Ingredient: BUPIVACAINE HYDROCHLORIDE
Strength: 0.75%
Dosage Form/Route: INJECTABLE;SPINAL
Application: A209087 | Product #001 | TE Code: AP
Applicant: B BRAUN MEDICAL INC
Approved: Apr 2, 2019 | RLD: No | RS: No | Type: RX